FAERS Safety Report 16629636 (Version 1)
Quarter: 2019Q3

REPORT INFORMATION
  Report Type: Spontaneous
  Country: US (occurrence: US)
  Receive Date: 20190725
  Receipt Date: 20190725
  Transmission Date: 20191004
  Serious: No
  Sender: FDA-Public Use
  Company Number: US-SUN PHARMACEUTICAL INDUSTRIES LTD-2019R1-212396

PATIENT
  Sex: Male

DRUGS (1)
  1. TESTOSTERONE. [Suspect]
     Active Substance: TESTOSTERONE
     Indication: PRODUCT USED FOR UNKNOWN INDICATION
     Dosage: UNK, 1DOSE/2 WEEKS
     Route: 065

REACTIONS (5)
  - Product quality issue [Unknown]
  - Sexual dysfunction [Unknown]
  - Taste disorder [Unknown]
  - Lethargy [Unknown]
  - Vomiting [Unknown]

NARRATIVE: CASE EVENT DATE: 201904
